FAERS Safety Report 9630118 (Version 1)
Quarter: 2013Q4

REPORT INFORMATION
  Report Type: Spontaneous
  Country: US (occurrence: US)
  Receive Date: 20131017
  Receipt Date: 20131017
  Transmission Date: 20140711
  Serious: Yes (Other)
  Sender: FDA-Public Use
  Company Number: US-TARO-2013P1020164

PATIENT
  Age: 85 Year
  Sex: Male

DRUGS (1)
  1. TERBINAFINE HYDROCHLORIDE [Suspect]
     Route: 061
     Dates: start: 2012

REACTIONS (2)
  - Off label use [Unknown]
  - Diabetes mellitus [Unknown]
